FAERS Safety Report 20479690 (Version 3)
Quarter: 2022Q1

REPORT INFORMATION
  Report Type: Spontaneous
  Country: JP (occurrence: JP)
  Receive Date: 20220216
  Receipt Date: 20220329
  Transmission Date: 20220423
  Serious: Yes (Other)
  Sender: FDA-Public Use
  Company Number: JP-PFIZER INC-202200186127

PATIENT
  Age: 4 Decade
  Sex: Male

DRUGS (6)
  1. AZITHROMYCIN DIHYDRATE [Suspect]
     Active Substance: AZITHROMYCIN DIHYDRATE
     Indication: Pericoronitis
     Dosage: 250 MG, 2X/DAY
     Route: 048
     Dates: start: 20220131, end: 20220201
  2. AZITHROMYCIN DIHYDRATE [Suspect]
     Active Substance: AZITHROMYCIN DIHYDRATE
     Indication: Osteitis
  3. LOXOPROFEN SODIUM [Concomitant]
     Active Substance: LOXOPROFEN SODIUM
     Indication: Antiinflammatory therapy
     Dosage: 60 MG, 3X/DAY
     Route: 048
     Dates: start: 20220131, end: 20220201
  4. LOXOPROFEN SODIUM [Concomitant]
     Active Substance: LOXOPROFEN SODIUM
     Indication: Analgesic therapy
  5. ALDIOXA [Concomitant]
     Active Substance: ALDIOXA
     Indication: Gastritis
     Dosage: 100 MG, 3X/DAY
     Route: 048
     Dates: start: 20220131, end: 20220201
  6. ALDIOXA [Concomitant]
     Active Substance: ALDIOXA
     Indication: Peptic ulcer

REACTIONS (7)
  - Anaphylactic reaction [Unknown]
  - Suspected COVID-19 [Unknown]
  - Abdominal distension [Unknown]
  - Diarrhoea [Unknown]
  - Chills [Recovering/Resolving]
  - Pyrexia [Recovering/Resolving]
  - Tremor [Unknown]

NARRATIVE: CASE EVENT DATE: 20220131
